FAERS Safety Report 9270711 (Version 1)
Quarter: 2013Q2

REPORT INFORMATION
  Report Type: Spontaneous
  Country: US (occurrence: US)
  Receive Date: 20130504
  Receipt Date: 20130504
  Transmission Date: 20140414
  Serious: Yes (Hospitalization)
  Sender: FDA-Public Use
  Company Number: US-MYLANLABS-2013S1009019

PATIENT
  Age: 17 Year
  Sex: Female

DRUGS (2)
  1. BACLOFEN [Suspect]
     Indication: CEREBRAL PALSY
     Route: 048
  2. BOTULINUM TOXIN [Concomitant]
     Indication: CEREBRAL PALSY
     Dosage: MONTHLY
     Route: 065

REACTIONS (2)
  - Psychotic disorder [Recovering/Resolving]
  - Withdrawal syndrome [Recovering/Resolving]
